FAERS Safety Report 23682347 (Version 1)
Quarter: 2024Q1

REPORT INFORMATION
  Report Type: Spontaneous
  Country: GB (occurrence: None)
  Receive Date: 20240327
  Receipt Date: 20240327
  Transmission Date: 20240410
  Serious: No
  Sender: FDA-Public Use
  Company Number: None

PATIENT
  Age: 27 Year
  Sex: Female

DRUGS (3)
  1. VAGISIL ANTI ITCH ORIGINAL STRENGTH [Suspect]
     Active Substance: BENZOCAINE\RESORCINOL
     Indication: Pruritus
     Dosage: OTHER QUANTITY : 1 PEA SIZED AMOUNT;?FREQUENCY : TWICE A DAY;?
     Route: 061
     Dates: start: 20240319, end: 20240327
  2. VAGISIL ANTI ITCH ORIGINAL STRENGTH [Suspect]
     Active Substance: BENZOCAINE\RESORCINOL
     Indication: Sensitive skin
  3. FOLIC ACID [Concomitant]
     Active Substance: FOLIC ACID

REACTIONS (4)
  - Application site vesicles [None]
  - Application site erythema [None]
  - Application site pruritus [None]
  - Fatigue [None]

NARRATIVE: CASE EVENT DATE: 20240327
